FAERS Safety Report 20510913 (Version 1)
Quarter: 2022Q1

REPORT INFORMATION
  Report Type: Report from Study
  Country: CA (occurrence: CA)
  Receive Date: 20220224
  Receipt Date: 20220224
  Transmission Date: 20220423
  Serious: Yes (Other)
  Sender: FDA-Public Use
  Company Number: CA-HLS-202200218

PATIENT
  Age: 37 Year
  Sex: Female
  Weight: 97 kg

DRUGS (2)
  1. CLOZARIL [Suspect]
     Active Substance: CLOZAPINE
     Indication: Schizophrenia
     Route: 048
     Dates: start: 20151110
  2. CLOZARIL [Suspect]
     Active Substance: CLOZAPINE
     Indication: Schizophrenia
     Dosage: 100 MG EVERY MORNING AND 225MG AT BEDTIME
     Route: 048
     Dates: start: 2012

REACTIONS (2)
  - Mental status changes [Unknown]
  - Investigation noncompliance [Recovering/Resolving]

NARRATIVE: CASE EVENT DATE: 20220115
